FAERS Safety Report 5092526-5 (Version None)
Quarter: 2006Q3

REPORT INFORMATION
  Report Type: 
  Country: None (occurrence: None)
  Receive Date: 20060828
  Receipt Date: 20060815
  Transmission Date: 20061208
  Serious: Yes (Hospitalization)
  Sender: FDA-Public Use
  Company Number: 2006100213

PATIENT
  Age: 53 Year
  Sex: Male
  Weight: 81.6021 kg

DRUGS (2)
  1. CELEBREX [Suspect]
     Indication: ARTHRITIS
     Dosage: (200 MG, 3 IN 1 WK), ORAL
     Route: 048
     Dates: start: 20040215, end: 20060515
  2. CLONAZEPAM [Suspect]
     Indication: ANXIETY
     Dosage: 1 MG (0.5 MG, 2 IN 1 D), ORAL
     Route: 048
     Dates: start: 20040215, end: 20060515

REACTIONS (2)
  - ATRIAL FIBRILLATION [None]
  - EJECTION FRACTION DECREASED [None]
